FAERS Safety Report 7624862-X (Version None)
Quarter: 2011Q3

REPORT INFORMATION
  Report Type: 
  Country: None (occurrence: None)
  Receive Date: 20110720
  Receipt Date: 20110707
  Transmission Date: 20111222
  Serious: Yes (Other)
  Sender: FDA-Public Use
  Company Number: US-AMGEN-USASP2011034708

PATIENT
  Sex: Female

DRUGS (1)
  1. ENBREL [Suspect]
     Indication: JUVENILE ARTHRITIS
     Dosage: 50 MG, Q2WK
     Dates: start: 20080101

REACTIONS (5)
  - ASTHENIA [None]
  - ADVERSE EVENT [None]
  - HEART RATE INCREASED [None]
  - DYSPNOEA [None]
  - NASOPHARYNGITIS [None]
